FAERS Safety Report 5202363-6 (Version None)
Quarter: 2007Q1

REPORT INFORMATION
  Report Type: 
  Country: None (occurrence: None)
  Receive Date: 20070109
  Receipt Date: 20061226
  Transmission Date: 20070707
  Serious: Yes (Hospitalization)
  Sender: FDA-Public Use
  Company Number: US-ELI_LILLY_AND_COMPANY-US200612004372

PATIENT
  Age: 54 Year
  Sex: Female

DRUGS (4)
  1. FORTEO [Suspect]
     Indication: OSTEOPOROSIS
     Dosage: UNK, UNK
     Dates: start: 20060101
  2. FORTEO [Suspect]
  3. COPAXONE                                /UNK/ [Concomitant]
  4. INDERAL [Concomitant]
     Indication: TREMOR

REACTIONS (6)
  - CERVIX CARCINOMA [None]
  - CONFUSIONAL STATE [None]
  - MALAISE [None]
  - MULTIPLE SCLEROSIS [None]
  - UTERINE CANCER [None]
  - VAGINAL HAEMORRHAGE [None]
